FAERS Safety Report 6957079-2 (Version None)
Quarter: 2010Q3

REPORT INFORMATION
  Report Type: 
  Country: None (occurrence: None)
  Receive Date: 20100831
  Receipt Date: 20100824
  Transmission Date: 20110219
  Serious: Yes (Hospitalization)
  Sender: FDA-Public Use
  Company Number: US-BIOGENIDEC-2010BI029396

PATIENT
  Age: 71 Year
  Sex: Male

DRUGS (2)
  1. TYSABRI [Suspect]
     Indication: MULTIPLE SCLEROSIS
     Route: 042
     Dates: start: 20070615, end: 20071227
  2. TYSABRI [Suspect]
     Route: 042
     Dates: start: 20091202

REACTIONS (1)
  - THROMBOSIS [None]
